FAERS Safety Report 9033530 (Version 2)
Quarter: 2013Q3

REPORT INFORMATION
  Report Type: Spontaneous
  Country: US (occurrence: ES)
  Receive Date: 20130128
  Receipt Date: 20130712
  Transmission Date: 20140515
  Serious: Yes (Other)
  Sender: FDA-Public Use
  Company Number: ES-009507513-0911ESP00036

PATIENT
  Age: 49 Year
  Sex: Female

DRUGS (3)
  1. SINGULAIR [Suspect]
     Indication: CHRONIC OBSTRUCTIVE PULMONARY DISEASE
     Dosage: 10 MG, QD
     Route: 048
     Dates: start: 20090902, end: 20090916
  2. SINGULAIR [Suspect]
     Dosage: UNK
     Route: 048
     Dates: start: 2009
  3. SERETIDE [Concomitant]
     Indication: CHRONIC OBSTRUCTIVE PULMONARY DISEASE
     Dosage: 100/200 MICROGRAMS, BID
     Route: 055

REACTIONS (3)
  - Depersonalisation [Recovered/Resolved]
  - Nightmare [Recovered/Resolved]
  - Confusional state [Recovered/Resolved]
